FAERS Safety Report 10187509 (Version 1)
Quarter: 2014Q2

REPORT INFORMATION
  Report Type: Spontaneous
  Country: US (occurrence: US)
  Receive Date: 20140522
  Receipt Date: 20140522
  Transmission Date: 20141212
  Serious: No
  Sender: FDA-Public Use
  Company Number: US-SANOFI-AVENTIS-2013SA080718

PATIENT
  Age: 49 Year
  Sex: Male
  Weight: 96.16 kg

DRUGS (4)
  1. LANTUS SOLOSTAR [Suspect]
     Indication: TYPE 2 DIABETES MELLITUS
     Dosage: AEPTC DOSE 11 U DOSE:11 UNIT(S)
     Route: 051
     Dates: start: 20130729
  2. GLIPIZIDE [Concomitant]
     Route: 065
  3. METFORMIN [Concomitant]
     Route: 065
  4. SOLOSTAR [Concomitant]

REACTIONS (3)
  - Blood cholesterol abnormal [Recovered/Resolved]
  - Blood glucose abnormal [Recovered/Resolved]
  - Blood glucose increased [Recovered/Resolved]
